FAERS Safety Report 7935499-7 (Version None)
Quarter: 2011Q4

REPORT INFORMATION
  Report Type: 
  Country: None (occurrence: None)
  Receive Date: 20111123
  Receipt Date: 20111117
  Transmission Date: 20120403
  Serious: Yes (Hospitalization)
  Sender: FDA-Public Use
  Company Number: US-BIOGENIDEC-2011BI037260

PATIENT
  Age: 43 Year
  Sex: Female

DRUGS (1)
  1. TYSABRI [Suspect]
     Indication: MULTIPLE SCLEROSIS
     Route: 042
     Dates: start: 20101118

REACTIONS (7)
  - HERPES ZOSTER [None]
  - VULVOVAGINAL SWELLING [None]
  - BLADDER DISORDER [None]
  - DRUG HYPERSENSITIVITY [None]
  - PAIN [None]
  - RASH PAPULAR [None]
  - SYNCOPE [None]
